FAERS Safety Report 5118717-2 (Version None)
Quarter: 2006Q4

REPORT INFORMATION
  Report Type: 
  Country: None (occurrence: None)
  Receive Date: 20061002
  Receipt Date: 20060806
  Transmission Date: 20070319
  Serious: Yes (Death, Hospitalization)
  Sender: FDA-Public Use
  Company Number: JP-ROCHE-458603

PATIENT
  Age: 74 Year
  Sex: Female

DRUGS (2)
  1. CELLCEPT [Suspect]
     Dosage: TREATMENT DURATION: 4 WEEKS.
     Route: 048
  2. RITUXAN [Suspect]
     Route: 042

REACTIONS (5)
  - ADENOVIRUS INFECTION [None]
  - DISSEMINATED INTRAVASCULAR COAGULATION [None]
  - NEUTROPHIL COUNT DECREASED [None]
  - PLATELET COUNT DECREASED [None]
  - PYREXIA [None]
